FAERS Safety Report 7670175-X (Version None)
Quarter: 2011Q3

REPORT INFORMATION
  Report Type: 
  Country: None (occurrence: None)
  Receive Date: 20110808
  Receipt Date: 20110802
  Transmission Date: 20111222
  Serious: Yes (Hospitalization, Other)
  Sender: FDA-Public Use
  Company Number: IT-ABBOTT-11P-083-0837840-00

PATIENT
  Sex: Female

DRUGS (11)
  1. VALPROATE SODIUM [Suspect]
     Indication: PRODUCT USED FOR UNKNOWN INDICATION
     Dosage: ATTEMPTED SUICIDE
     Route: 048
     Dates: start: 20110416, end: 20110416
  2. ACETAMINOPHEN [Suspect]
     Indication: PRODUCT USED FOR UNKNOWN INDICATION
     Dosage: ATTEMPTED SUICIDE
     Route: 048
     Dates: start: 20110416, end: 20110416
  3. EN [Suspect]
     Indication: PRODUCT USED FOR UNKNOWN INDICATION
     Dosage: ATTEMPTED SUICIDE
     Route: 048
     Dates: start: 20110416, end: 20110416
  4. SPAMOMEN [Suspect]
     Indication: PRODUCT USED FOR UNKNOWN INDICATION
     Dosage: ATTEMPTED SUICIDE
     Dates: start: 20110302
  5. LASIX [Suspect]
     Indication: PRODUCT USED FOR UNKNOWN INDICATION
     Dosage: ATTEMPTED SUICIDE
     Dates: start: 20110416, end: 20110416
  6. XANAX [Suspect]
     Indication: PRODUCT USED FOR UNKNOWN INDICATION
     Dosage: ATTEMPTED SUICIDE
     Route: 048
     Dates: start: 20110416, end: 20110416
  7. FLUOXETINE HYDROCHLORIDE [Suspect]
     Indication: PRODUCT USED FOR UNKNOWN INDICATION
     Dosage: ATTEMPTED SUICIDE
     Dates: start: 20110302
  8. VALPROATE SODIUM [Suspect]
     Dosage: ATTEMPTED SUICIDE
     Dates: start: 20110302
  9. ACETAMINOPHEN [Suspect]
     Dosage: ATTEMPTED SUICIDE
     Dates: start: 20110302
  10. SEROQUEL [Suspect]
     Indication: PRODUCT USED FOR UNKNOWN INDICATION
     Dosage: ATTEMPTED SUICIDE
     Dates: start: 20110302
  11. LASIX [Suspect]
     Dosage: ATTEMPTED SUICIDE
     Dates: start: 20110302

REACTIONS (6)
  - BRADYKINESIA [None]
  - BRADYPHRENIA [None]
  - PSYCHOMOTOR RETARDATION [None]
  - SUICIDE ATTEMPT [None]
  - MULTIPLE DRUG OVERDOSE INTENTIONAL [None]
  - TRANSAMINASES INCREASED [None]
